FAERS Safety Report 15195138 (Version 12)
Quarter: 2021Q3

REPORT INFORMATION
  Report Type: Spontaneous
  Country: IN (occurrence: IN)
  Receive Date: 20180725
  Receipt Date: 20210922
  Transmission Date: 20211014
  Serious: Yes (Other)
  Sender: FDA-Public Use
  Company Number: IN-PFIZER INC-2017177361

PATIENT
  Age: 74 Year
  Sex: Female

DRUGS (5)
  1. PALBACE [Suspect]
     Active Substance: PALBOCICLIB
     Indication: BREAST CANCER METASTATIC
     Dosage: 100 MG, 1X/DAY
     Route: 048
     Dates: start: 20170420, end: 20170514
  2. PALBACE [Suspect]
     Active Substance: PALBOCICLIB
     Dosage: 125 MG, CYCLIC (21 DAYS; 10 CYCLES)
     Route: 048
     Dates: start: 20210623
  3. SHELCAL [Concomitant]
     Active Substance: CALCIUM CARBONATE\CHOLECALCIFEROL
     Dosage: 100 MG, 1X/DAY
  4. LETRONAT [Concomitant]
     Dosage: 2.5 MG, 1X/DAY FOR 28 DAYS IN THE MORNING
  5. PALBACE [Suspect]
     Active Substance: PALBOCICLIB
     Dosage: 75 MG, CYCLIC [ONCE DAILY (3 WEEKS ON AND 1 WEEK OFF)]
     Route: 048

REACTIONS (9)
  - Sensitivity to weather change [Unknown]
  - Coma [Recovered/Resolved]
  - Blood count abnormal [Unknown]
  - Cerebral thrombosis [Recovered/Resolved]
  - SARS-CoV-2 test positive [Unknown]
  - Insomnia [Recovering/Resolving]
  - Toothache [Unknown]
  - Skin disorder [Unknown]
  - Cough [Not Recovered/Not Resolved]

NARRATIVE: CASE EVENT DATE: 2017
